FAERS Safety Report 5804285-6 (Version None)
Quarter: 2008Q3

REPORT INFORMATION
  Report Type: 
  Country: None (occurrence: None)
  Receive Date: 20080709
  Receipt Date: 20080708
  Transmission Date: 20090109
  Serious: Yes (Life-Threatening)
  Sender: FDA-Public Use
  Company Number: GB-BRISTOL-MYERS SQUIBB COMPANY-14240907

PATIENT
  Age: 54 Year
  Sex: Male

DRUGS (12)
  1. ETOPOSIDE [Suspect]
     Indication: ACUTE LYMPHOCYTIC LEUKAEMIA
  2. CYCLOPHOSPHAMIDE [Suspect]
     Indication: ACUTE LYMPHOCYTIC LEUKAEMIA
  3. VINCRISTINE [Suspect]
     Indication: ACUTE LYMPHOCYTIC LEUKAEMIA
  4. METHOTREXATE [Suspect]
     Indication: ACUTE LYMPHOCYTIC LEUKAEMIA
  5. PREDNISOLONE [Suspect]
     Indication: ACUTE LYMPHOCYTIC LEUKAEMIA
  6. DAUNORUBICIN HCL [Suspect]
     Indication: ACUTE LYMPHOCYTIC LEUKAEMIA
  7. L-ASPARAGINASE [Suspect]
     Indication: ACUTE LYMPHOCYTIC LEUKAEMIA
  8. CYTARABINE [Suspect]
     Indication: ACUTE LYMPHOCYTIC LEUKAEMIA
  9. MERCAPTOPURINE [Suspect]
     Indication: ACUTE LYMPHOCYTIC LEUKAEMIA
  10. THIOGUANINE [Suspect]
     Indication: ACUTE LYMPHOCYTIC LEUKAEMIA
  11. DEXAMETHASONE [Suspect]
     Indication: ACUTE LYMPHOCYTIC LEUKAEMIA
  12. RADIATION THERAPY [Suspect]
     Dosage: CRANIAL IRRADIATION; 1 DOSAGE FORM= 1 CGY; 21 FRACTIONS.

REACTIONS (1)
  - CHRONIC MYELOID LEUKAEMIA [None]
